FAERS Safety Report 8924331 (Version 3)
Quarter: 2013Q1

REPORT INFORMATION
  Report Type: Spontaneous
  Country: JP (occurrence: JP)
  Receive Date: 20121126
  Receipt Date: 20130118
  Transmission Date: 20140127
  Serious: Yes (Other)
  Sender: FDA-Public Use
  Company Number: JP-GLAXOSMITHKLINE-B0846546A

PATIENT
  Age: 83 Year
  Sex: Male

DRUGS (15)
  1. GABAPENTIN ENACARBIL [Suspect]
     Indication: RESTLESS LEGS SYNDROME
     Dosage: 300MG PER DAY
     Route: 048
     Dates: start: 20120912, end: 20120921
  2. PRAMIPEXOLE [Concomitant]
     Route: 065
     Dates: end: 201209
  3. ALLOPURINOL [Concomitant]
     Route: 065
  4. FUROSEMIDE [Concomitant]
     Route: 065
  5. FERROMIA [Concomitant]
     Route: 065
  6. OMEPRAZOLE [Concomitant]
     Route: 065
  7. BUNAZOSIN [Concomitant]
     Route: 065
  8. SPIRONOLACTONE [Concomitant]
     Route: 065
  9. ENALAPRIL [Concomitant]
     Route: 065
  10. AMLODIPINE BESILATE [Concomitant]
     Route: 065
  11. URDESTON [Concomitant]
     Route: 065
  12. MENATETRENONE [Concomitant]
     Route: 065
  13. COBAMAMIDE [Concomitant]
     Route: 065
  14. ANTIBIOTIC-RESISTANT LACTIC ACID BACTERIA [Concomitant]
     Route: 065
  15. ISOLEUCINE + LEUCINE + VALINE [Concomitant]
     Route: 065

REACTIONS (2)
  - Muscular weakness [Recovered/Resolved]
  - Facial bones fracture [Recovered/Resolved]
